FAERS Safety Report 6152578-8 (Version None)
Quarter: 2009Q2

REPORT INFORMATION
  Report Type: 
  Country: None (occurrence: None)
  Receive Date: 20090413
  Receipt Date: 20090402
  Transmission Date: 20091009
  Serious: Yes (Other)
  Sender: FDA-Public Use
  Company Number: US-BAYER-200911048BCC

PATIENT
  Age: 67 Year
  Sex: Female

DRUGS (5)
  1. MILK OF MAGNESIA TAB [Suspect]
     Indication: DRUG USE FOR UNKNOWN INDICATION
     Route: 048
  2. MIRALAX [Suspect]
     Indication: DRUG USE FOR UNKNOWN INDICATION
     Route: 048
  3. CYMBALTA [Concomitant]
  4. LORAZEPAM [Concomitant]
  5. MIRTAZAPINE [Concomitant]

REACTIONS (1)
  - CONVULSION [None]
